FAERS Safety Report 10496933 (Version 1)
Quarter: 2014Q4

REPORT INFORMATION
  Report Type: Spontaneous
  Country: GB (occurrence: GB)
  Receive Date: 20141006
  Receipt Date: 20141006
  Transmission Date: 20150528
  Serious: Yes (Hospitalization)
  Sender: FDA-Public Use
  Company Number: GB-BRISTOL-MYERS SQUIBB COMPANY-21452255

PATIENT
  Age: 81 Year
  Sex: Male
  Weight: 86 kg

DRUGS (11)
  1. QUININE SULFATE. [Concomitant]
     Active Substance: QUININE SULFATE
  2. SALBUTAMOL [Concomitant]
     Active Substance: ALBUTEROL
  3. ELIQUIS [Suspect]
     Active Substance: APIXABAN
     Indication: ATRIAL FIBRILLATION
     Route: 048
     Dates: start: 20140620, end: 20140904
  4. CANDESARTAN [Concomitant]
     Active Substance: CANDESARTAN
  5. FUROSEMIDE. [Concomitant]
     Active Substance: FUROSEMIDE
  6. OMEPRAZOLE. [Concomitant]
     Active Substance: OMEPRAZOLE
  7. ISOSORBIDE [Concomitant]
     Active Substance: ISOSORBIDE
  8. ATORVASTATIN [Concomitant]
     Active Substance: ATORVASTATIN
  9. SYMBICORT [Concomitant]
     Active Substance: BUDESONIDE\FORMOTEROL FUMARATE DIHYDRATE
  10. TIOTROPIUM BROMIDE [Concomitant]
     Active Substance: TIOTROPIUM BROMIDE
  11. ADCAL-D3 [Concomitant]
     Active Substance: CALCIUM CARBONATE\CHOLECALCIFEROL

REACTIONS (1)
  - Duodenal ulcer perforation [Recovering/Resolving]

NARRATIVE: CASE EVENT DATE: 20140903
